FAERS Safety Report 9265814 (Version 1)
Quarter: 2013Q2

REPORT INFORMATION
  Report Type: Report from Study
  Country: US (occurrence: US)
  Receive Date: 20130501
  Receipt Date: 20130501
  Transmission Date: 20140414
  Serious: Yes (Hospitalization)
  Sender: FDA-Public Use
  Company Number: US-ACTELION-A-US2013-82525

PATIENT
  Age: 54 Year
  Sex: Male

DRUGS (2)
  1. TRACLEER [Suspect]
     Indication: TRANSPOSITION OF THE GREAT VESSELS
     Dosage: UNK
     Route: 048
  2. ADCIRCA [Concomitant]

REACTIONS (1)
  - Cardiac disorder [Unknown]
